FAERS Safety Report 12108291 (Version 2)
Quarter: 2016Q2

REPORT INFORMATION
  Report Type: Spontaneous
  Country: US (occurrence: US)
  Receive Date: 20160224
  Receipt Date: 20160405
  Transmission Date: 20160815
  Serious: Yes (Hospitalization)
  Sender: FDA-Public Use
  Company Number: US-009507513-1602USA007772

PATIENT
  Age: 64 Year
  Sex: Female

DRUGS (1)
  1. PREGNYL [Suspect]
     Active Substance: CHORIOGONADOTROPIN ALFA
     Indication: OBESITY
     Dosage: 4 HCG INJECTIONS

REACTIONS (2)
  - Product use issue [Unknown]
  - Deep vein thrombosis [Unknown]
